FAERS Safety Report 10121377 (Version 2)
Quarter: 2014Q2

REPORT INFORMATION
  Report Type: Report from Study
  Country: US (occurrence: US)
  Receive Date: 20140425
  Receipt Date: 20140611
  Transmission Date: 20141212
  Serious: Yes (Hospitalization)
  Sender: FDA-Public Use
  Company Number: US-MPIJNJ-2014MPI001197

PATIENT
  Age: 61 Year
  Sex: Male
  Weight: 79.3 kg

DRUGS (1)
  1. VELCADE [Suspect]
     Indication: PLASMA CELL MYELOMA
     Dosage: 3 MG, DAY 1, 8, 15, 22
     Route: 058
     Dates: start: 20130910, end: 20140204

REACTIONS (1)
  - Drug abuse [Recovered/Resolved]
